FAERS Safety Report 9164618 (Version 1)
Quarter: 2013Q1

REPORT INFORMATION
  Report Type: Spontaneous
  Country: US (occurrence: US)
  Receive Date: 20130315
  Receipt Date: 20130315
  Transmission Date: 20140127
  Serious: No
  Sender: FDA-Public Use
  Company Number: US-009507513-1303USA006858

PATIENT
  Sex: Female

DRUGS (11)
  1. ZOCOR [Suspect]
  2. LANTUS [Concomitant]
  3. CELEBREX [Concomitant]
     Dosage: 1 CAPSULE, BID
  4. LIPITOR [Concomitant]
     Dosage: 1 DF, QD AT BEDTIME
  5. NEXIUM [Concomitant]
  6. NOVOLOG [Concomitant]
  7. TRICOR (ADENOSINE) [Concomitant]
  8. BACTRIM DS [Concomitant]
  9. SYNTHYROID [Concomitant]
  10. CELEXA [Concomitant]
  11. FLEXERIL [Concomitant]

REACTIONS (1)
  - Drug hypersensitivity [Unknown]
